FAERS Safety Report 11381072 (Version 2)
Quarter: 2015Q3

REPORT INFORMATION
  Report Type: Report from Study
  Country: AU (occurrence: AU)
  Receive Date: 20150814
  Receipt Date: 20150819
  Transmission Date: 20151125
  Serious: Yes (Hospitalization)
  Sender: FDA-Public Use
  Company Number: AU-ABBVIE-15P-008-1444676-00

PATIENT
  Age: 62 Year
  Sex: Male

DRUGS (1)
  1. LUCRIN [Suspect]
     Active Substance: LEUPROLIDE ACETATE
     Indication: PROSTATE CANCER
     Route: 065
     Dates: start: 20150601

REACTIONS (2)
  - Infection [Recovering/Resolving]
  - Prostatic operation [Recovering/Resolving]

NARRATIVE: CASE EVENT DATE: 20150602
